FAERS Safety Report 25272853 (Version 2)
Quarter: 2025Q3

REPORT INFORMATION
  Report Type: Report from Study
  Country: US (occurrence: US)
  Receive Date: 20250506
  Receipt Date: 20250930
  Transmission Date: 20251020
  Serious: No
  Sender: TRAVERE THERAPEUTICS
  Company Number: US-TRAVERE-2025TVT00513

PATIENT
  Age: 35 Year
  Sex: Male

DRUGS (6)
  1. FILSPARI [Suspect]
     Active Substance: SPARSENTAN
     Indication: IgA nephropathy
     Route: 048
     Dates: start: 20250506
  2. FILSPARI [Suspect]
     Active Substance: SPARSENTAN
     Route: 048
  3. MOUNJARO [Concomitant]
     Active Substance: TIRZEPATIDE
  4. PREDNISONE [Concomitant]
     Active Substance: PREDNISONE
  5. TARPEYO [Concomitant]
     Active Substance: BUDESONIDE
  6. FUROSEMIDE [Concomitant]
     Active Substance: FUROSEMIDE

REACTIONS (4)
  - Blood creatine increased [Unknown]
  - Nausea [Unknown]
  - Vomiting [Unknown]
  - Gastroenteritis viral [Unknown]
